FAERS Safety Report 20756487 (Version 1)
Quarter: 2022Q2

REPORT INFORMATION
  Report Type: Spontaneous
  Country: RU (occurrence: RU)
  Receive Date: 20220427
  Receipt Date: 20220427
  Transmission Date: 20220721
  Serious: Yes (Other)
  Sender: FDA-Public Use
  Company Number: RU-AMERICAN REGENT INC-2022001126

PATIENT
  Age: 65 Year
  Sex: Male
  Weight: 100 kg

DRUGS (2)
  1. VENOFER [Suspect]
     Active Substance: IRON SUCROSE
     Indication: Iron deficiency
     Dosage: DILUTION OF 5 ML IN 100 ML
     Dates: start: 20210326, end: 20210326
  2. VENOFER [Suspect]
     Active Substance: IRON SUCROSE
     Dosage: DILUTION OF 5 ML IN 100 ML
     Dates: start: 20210327, end: 20210327

REACTIONS (1)
  - Asphyxia [Recovered/Resolved]

NARRATIVE: CASE EVENT DATE: 20210327
